FAERS Safety Report 19734375 (Version 1)
Quarter: 2021Q3

REPORT INFORMATION
  Report Type: Report from Study
  Country: RU (occurrence: RU)
  Receive Date: 20210823
  Receipt Date: 20210823
  Transmission Date: 20211014
  Serious: Yes (Other)
  Sender: FDA-Public Use
  Company Number: RU-TOPROL-2020000211

PATIENT
  Age: 71 Year
  Sex: Female

DRUGS (8)
  1. BETALOC ZOK [Suspect]
     Active Substance: METOPROLOL SUCCINATE
     Dosage: 25 MG, QD
     Route: 048
     Dates: start: 201908
  2. MOXONIDINE [Concomitant]
     Active Substance: MOXONIDINE
  3. BRILINTA [Suspect]
     Active Substance: TICAGRELOR
     Dosage: 90 MG, BID
     Route: 048
     Dates: start: 201908, end: 201912
  4. LISINOPRIL. [Concomitant]
     Active Substance: LISINOPRIL
  5. AMLODIPINE [Concomitant]
     Active Substance: AMLODIPINE BESYLATE
  6. THROMBO ASS [Concomitant]
     Active Substance: ASPIRIN
  7. LOZAP                              /00661201/ [Concomitant]
     Active Substance: OMEPRAZOLE
  8. CAPOTEN [Concomitant]
     Active Substance: CAPTOPRIL

REACTIONS (7)
  - Heart rate decreased [Unknown]
  - Dizziness [Unknown]
  - Contusion [Recovered/Resolved]
  - Epistaxis [Recovered/Resolved]
  - Blood pressure decreased [Not Recovered/Not Resolved]
  - Malaise [Unknown]
  - Product use in unapproved indication [Unknown]

NARRATIVE: CASE EVENT DATE: 201908
